APPROVED DRUG PRODUCT: CYSTEINE HYDROCHLORIDE
Active Ingredient: CYSTEINE HYDROCHLORIDE
Strength: 7.25% **Federal Register determination that product was not discontinued or withdrawn for safety or effectiveness reasons**
Dosage Form/Route: INJECTABLE;INJECTION
Application: N019523 | Product #001
Applicant: HOSPIRA INC
Approved: Oct 22, 1986 | RLD: Yes | RS: No | Type: DISCN